FAERS Safety Report 8471039-4 (Version None)
Quarter: 2012Q2

REPORT INFORMATION
  Report Type: 
  Country: None (occurrence: None)
  Receive Date: 20120627
  Receipt Date: 20120618
  Transmission Date: 20120825
  Serious: Yes (Hospitalization)
  Sender: FDA-Public Use
  Company Number: DK-B.I. PHARMACEUTICALS,INC./RIDGEFIELD-2012-SW-00504DB

PATIENT
  Sex: Male
  Weight: 80 kg

DRUGS (6)
  1. PRADAXA [Suspect]
     Indication: ATRIAL FIBRILLATION
     Dosage: 220 MG
     Route: 048
     Dates: start: 20120604, end: 20120609
  2. METOPROLOL SUCCINATE [Concomitant]
     Indication: ATRIAL FIBRILLATION
     Dates: start: 20120604
  3. DIGOXIN ^DAK^ [Concomitant]
     Indication: ATRIAL FIBRILLATION
     Dates: start: 20120604
  4. TAMSIN [Concomitant]
     Indication: BENIGN PROSTATIC HYPERPLASIA
     Dates: start: 20110101
  5. VALPROIC ACID [Concomitant]
     Indication: EPILEPSY
     Dates: start: 20110101
  6. CITALOPRAM HYDROBROMIDE [Concomitant]
     Indication: DYSPHORIA
     Dates: start: 20110101

REACTIONS (2)
  - FATIGUE [None]
  - NAUSEA [None]
